FAERS Safety Report 10244275 (Version 1)
Quarter: 2014Q1

REPORT INFORMATION
  Report Type: Spontaneous
  Country: US (occurrence: None)
  Receive Date: 20140306
  Receipt Date: 20140306
  Transmission Date: 20141002
  Serious: Yes (Disabling)
  Sender: FDA-Public Use
  Company Number: 163-21880-13100838

PATIENT
  Age: 80 Year
  Sex: Female

DRUGS (2)
  1. REVLIMID (LENALIDOMIDE) (CAPSULES) [Suspect]
     Indication: CHRONIC LYMPHOCYTIC LEUKAEMIA
     Route: 048
     Dates: start: 20130709, end: 20130822
  2. REVLIMID (LENALIDOMIDE) (CAPSULES) [Suspect]
     Indication: NON-HODGKIN^S LYMPHOMA REFRACTORY
     Route: 048
     Dates: start: 20130709, end: 20130822

REACTIONS (1)
  - Chronic lymphocytic leukaemia [None]
